FAERS Safety Report 15353622 (Version 2)
Quarter: 2018Q4

REPORT INFORMATION
  Report Type: Spontaneous
  Country: FR (occurrence: FR)
  Receive Date: 20180905
  Receipt Date: 20181008
  Transmission Date: 20190204
  Serious: Yes (Other)
  Sender: FDA-Public Use
  Company Number: FR-GILEAD-2018-0361279

PATIENT
  Age: 43 Year
  Sex: Male
  Weight: 89 kg

DRUGS (8)
  1. GABAPENTINE [Concomitant]
     Active Substance: GABAPENTIN
     Route: 048
  2. TARDYFERON [Concomitant]
     Active Substance: FERROUS SULFATE
     Route: 048
  3. HARVONI [Suspect]
     Active Substance: LEDIPASVIR\SOFOSBUVIR
     Indication: CHRONIC HEPATITIS C
     Dosage: 1 DF, QD
     Route: 048
     Dates: start: 20180730
  4. XEROQUEL [Concomitant]
     Active Substance: QUETIAPINE FUMARATE
     Route: 048
  5. METHADONE [Suspect]
     Active Substance: METHADONE HYDROCHLORIDE
     Indication: DRUG DEPENDENCE
     Dosage: 80 MG, QD
     Route: 048
     Dates: start: 20100101
  6. SERESTA [Concomitant]
     Active Substance: OXAZEPAM
     Route: 048
  7. DEPAKINE                           /00228501/ [Concomitant]
     Active Substance: VALPROIC ACID
     Route: 048
  8. LANSOPRAZOLE. [Concomitant]
     Active Substance: LANSOPRAZOLE
     Route: 048

REACTIONS (1)
  - Drug withdrawal syndrome [Recovering/Resolving]

NARRATIVE: CASE EVENT DATE: 20180802
